FAERS Safety Report 5243532-9 (Version None)
Quarter: 2007Q1

REPORT INFORMATION
  Report Type: 
  Country: None (occurrence: None)
  Receive Date: 20070222
  Receipt Date: 20070213
  Transmission Date: 20070707
  Serious: Yes (Death, Hospitalization)
  Sender: FDA-Public Use
  Company Number: PHBS2006JP19365

PATIENT
  Age: 23 Year
  Sex: Female

DRUGS (12)
  1. NEORAL [Suspect]
     Indication: APLASTIC ANAEMIA
     Dosage: 200 MG/DAY
     Route: 048
     Dates: start: 20011220, end: 20020718
  2. NEORAL [Suspect]
     Dosage: 250 MG/D
     Route: 048
     Dates: start: 20010201, end: 20011101
  3. NEUPOGEN [Concomitant]
     Dosage: 100 UG/D
  4. IRRADIATION [Concomitant]
     Dates: start: 20011112
  5. METHOTREXATE [Concomitant]
     Indication: STEM CELL TRANSPLANT
     Route: 065
     Dates: start: 20011101
  6. PREDNISOLONE [Concomitant]
     Indication: LIVER DISORDER
     Dates: start: 20020911
  7. ANTITHYMOCYTE IMMUNOGLOBULIN [Concomitant]
     Indication: APLASTIC ANAEMIA
     Dosage: 500 MG/D
     Dates: start: 20000401
  8. ANTITHYMOCYTE IMMUNOGLOBULIN [Concomitant]
     Dates: start: 20000801
  9. CYCLOPHOSPHAMIDE [Concomitant]
     Indication: APLASTIC ANAEMIA
     Dosage: 50 MG/KG/D
     Route: 065
     Dates: end: 20011115
  10. CYCLOPHOSPHAMIDE [Concomitant]
     Dosage: 250 MG/D
     Route: 065
     Dates: start: 20001201
  11. SANDIMMUNE [Suspect]
     Indication: STEM CELL TRANSPLANT
     Dosage: 3 MG/KG/DAY
     Route: 042
     Dates: start: 20011111, end: 20011219
  12. EPOGEN [Concomitant]
     Dosage: 6000 U, UNK

REACTIONS (25)
  - ABDOMINAL INFECTION [None]
  - ALANINE AMINOTRANSFERASE INCREASED [None]
  - APLASTIC ANAEMIA [None]
  - ASPARTATE AMINOTRANSFERASE INCREASED [None]
  - BACTERIAL INFECTION [None]
  - BONE MARROW DISORDER [None]
  - BONE MARROW FAILURE [None]
  - CHROMOSOME ABNORMALITY [None]
  - COMA HEPATIC [None]
  - DISEASE PROGRESSION [None]
  - DRUG INEFFECTIVE [None]
  - HAEMODIALYSIS [None]
  - HAEMOSIDEROSIS [None]
  - HEPATIC ATROPHY [None]
  - HEPATIC FAILURE [None]
  - HEPATIC FUNCTION ABNORMAL [None]
  - HEPATITIS [None]
  - INTRA-ABDOMINAL HAEMORRHAGE [None]
  - LIVER TRANSPLANT [None]
  - MYELODYSPLASTIC SYNDROME [None]
  - PANCYTOPENIA [None]
  - PERITONEAL INFECTION [None]
  - STEM CELL TRANSPLANT [None]
  - SUDDEN DEATH [None]
  - THROMBOCYTOPENIA [None]
